FAERS Safety Report 19507194 (Version 1)
Quarter: 2021Q3

REPORT INFORMATION
  Report Type: Spontaneous
  Country: US (occurrence: US)
  Receive Date: 20210708
  Receipt Date: 20210708
  Transmission Date: 20211014
  Serious: No
  Sender: FDA-Public Use
  Company Number: US-PFIZER INC-2021417027

PATIENT
  Age: 77 Year
  Sex: Female
  Weight: 68.04 kg

DRUGS (3)
  1. LYRICA [Suspect]
     Active Substance: PREGABALIN
     Dosage: UNK
     Dates: end: 20210407
  2. ATENOLOL. [Concomitant]
     Active Substance: ATENOLOL
     Indication: VASCULAR HEADACHE
     Dosage: 50 MG
  3. LYRICA CR [Suspect]
     Active Substance: PREGABALIN
     Dosage: UNK
     Dates: start: 202103

REACTIONS (1)
  - Tinnitus [Unknown]

NARRATIVE: CASE EVENT DATE: 2021
